FAERS Safety Report 23377205 (Version 1)
Quarter: 2024Q1

REPORT INFORMATION
  Report Type: Spontaneous
  Country: US (occurrence: US)
  Receive Date: 20240108
  Receipt Date: 20240108
  Transmission Date: 20240410
  Serious: No
  Sender: FDA-Public Use
  Company Number: US-SA-SAC20240102000550

PATIENT
  Age: 59 Year
  Sex: Female
  Weight: 61.23 kg

DRUGS (1)
  1. DUPIXENT [Suspect]
     Active Substance: DUPILUMAB
     Indication: Dermatitis atopic
     Dosage: 300 MG
     Route: 058
     Dates: start: 20231114, end: 2023

REACTIONS (7)
  - Pain [Unknown]
  - Cough [Unknown]
  - Headache [Unknown]
  - Malaise [Unknown]
  - Secretion discharge [Unknown]
  - Chest discomfort [Unknown]
  - Aphonia [Unknown]
